FAERS Safety Report 5599840-5 (Version None)
Quarter: 2008Q1

REPORT INFORMATION
  Report Type: 
  Country: None (occurrence: None)
  Receive Date: 20080123
  Receipt Date: 20080111
  Transmission Date: 20080703
  Serious: Yes (Other)
  Sender: FDA-Public Use
  Company Number: US-ROCHE-526170

PATIENT
  Age: 66 Year
  Sex: Female
  Weight: 57.7 kg

DRUGS (5)
  1. BONIVA [Suspect]
     Indication: OSTEOPOROSIS
     Dosage: STRENGTH: 3 MG/3 ML
     Route: 042
     Dates: start: 20061020, end: 20061020
  2. ASCORBIC ACID [Concomitant]
  3. CALCIUM NOS [Concomitant]
  4. VITAMIN B [Concomitant]
  5. MULTI-VITAMIN [Concomitant]

REACTIONS (2)
  - HYPERTHYROIDISM [None]
  - SUPRAVENTRICULAR TACHYCARDIA [None]
